FAERS Safety Report 5871653-6 (Version None)
Quarter: 2008Q3

REPORT INFORMATION
  Report Type: 
  Country: None (occurrence: None)
  Receive Date: 20080905
  Receipt Date: 20080826
  Transmission Date: 20090109
  Serious: Yes (Death, Other)
  Sender: FDA-Public Use
  Company Number: US-JNJFOC-20080303234

PATIENT
  Sex: Female
  Weight: 36.29 kg

DRUGS (21)
  1. PREZISTA [Suspect]
     Indication: HIV INFECTION
     Route: 048
  2. ISENTRESS [Concomitant]
     Indication: HIV INFECTION
     Route: 048
  3. TRUVADA [Concomitant]
     Indication: HIV INFECTION
     Route: 048
  4. EPZICOM [Concomitant]
     Indication: HIV INFECTION
     Route: 048
  5. REYATAZ [Concomitant]
     Indication: HIV INFECTION
     Route: 048
  6. NORVIR [Concomitant]
  7. NORVIR [Concomitant]
     Indication: HIV INFECTION
  8. INVIRASE [Concomitant]
     Indication: HIV INFECTION
     Route: 048
  9. BACTRIM [Concomitant]
     Indication: ANTIFUNGAL PROPHYLAXIS
  10. PEPCID [Concomitant]
     Indication: ABDOMINAL DISCOMFORT
  11. CIDOFOVIR [Concomitant]
     Indication: CYTOMEGALOVIRUS CHORIORETINITIS
  12. CANCIDAS [Concomitant]
     Indication: OESOPHAGEAL CANDIDIASIS
     Route: 042
  13. ZITHROMAX [Concomitant]
     Indication: PROPHYLAXIS
     Route: 048
  14. VANCOMYCIN HYDROCHLORIDE [Concomitant]
     Indication: ABSCESS
     Route: 042
  15. ABELCET [Concomitant]
     Route: 042
  16. VORCONAZOLE [Concomitant]
  17. ZOFRAN [Concomitant]
  18. BIAXIN [Concomitant]
  19. ETHAMBUTOL HCL [Concomitant]
     Indication: MYCOBACTERIA TEST
     Route: 048
  20. ACYCLOVIR [Concomitant]
  21. PERCOCET [Concomitant]
     Route: 048

REACTIONS (2)
  - ACQUIRED IMMUNODEFICIENCY SYNDROME [None]
  - ANAEMIA [None]
